FAERS Safety Report 9645281 (Version 8)
Quarter: 2014Q3

REPORT INFORMATION
  Report Type: Report from Study
  Country: JP (occurrence: JP)
  Receive Date: 20131025
  Receipt Date: 20140826
  Transmission Date: 20150326
  Serious: Yes (Other)
  Sender: FDA-Public Use
  Company Number: PHHY2013JP119487

PATIENT
  Age: 41 Year
  Sex: Female

DRUGS (1)
  1. GILENYA [Suspect]
     Active Substance: FINGOLIMOD HYDROCHLORIDE
     Indication: MULTIPLE SCLEROSIS
     Dosage: 0.5 MG, QD
     Route: 048
     Dates: start: 20120719, end: 20131009

REACTIONS (4)
  - Oropharyngeal pain [Recovering/Resolving]
  - Platelet count decreased [Recovering/Resolving]
  - Lymphocyte count decreased [Recovered/Resolved]
  - Visual field defect [Unknown]

NARRATIVE: CASE EVENT DATE: 20120720
